FAERS Safety Report 7783409-8 (Version None)
Quarter: 2011Q3

REPORT INFORMATION
  Report Type: 
  Country: None (occurrence: None)
  Receive Date: 20110928
  Receipt Date: 20110919
  Transmission Date: 20111222
  Serious: Yes (Hospitalization)
  Sender: FDA-Public Use
  Company Number: ES-JNJFOC-20110907845

PATIENT
  Age: 87 Year
  Sex: Female

DRUGS (10)
  1. FENTANYL [Suspect]
     Route: 062
  2. TAMOXIFEN CITRATE [Concomitant]
     Route: 065
  3. PANTOPRAZOLE [Concomitant]
     Route: 065
  4. ACETAMINOPHEN [Concomitant]
     Route: 065
  5. UNKNOWN MEDICATION [Concomitant]
     Route: 065
  6. FENTANYL [Suspect]
     Indication: PAIN
     Route: 062
  7. FENTANYL [Suspect]
     Route: 062
  8. SERTRALINE HYDROCHLORIDE [Concomitant]
     Route: 065
  9. CLOPIDOGREL [Concomitant]
     Route: 065
  10. DILTIAZEM HCL [Concomitant]
     Route: 065

REACTIONS (3)
  - DELUSION [None]
  - DRUG INEFFECTIVE [None]
  - CONFUSIONAL STATE [None]
